FAERS Safety Report 9465648 (Version 3)
Quarter: 2013Q4

REPORT INFORMATION
  Report Type: Spontaneous
  Country: JP (occurrence: JP)
  Receive Date: 20130820
  Receipt Date: 20131025
  Transmission Date: 20140711
  Serious: Yes (Life-Threatening, Other)
  Sender: FDA-Public Use
  Company Number: JP-JNJFOC-20130805993

PATIENT
  Age: 88 Year
  Sex: Female
  Weight: 46 kg

DRUGS (9)
  1. REMINYL [Suspect]
     Indication: DEMENTIA
     Route: 048
     Dates: start: 20130710, end: 20130712
  2. REMINYL [Suspect]
     Indication: DEMENTIA
     Route: 048
     Dates: start: 20130611, end: 20130709
  3. REMINYL [Suspect]
     Indication: DEMENTIA
     Route: 048
     Dates: start: 20130405, end: 20130610
  4. REMINYL [Suspect]
     Indication: DEMENTIA
     Route: 048
     Dates: start: 20130329, end: 20130404
  5. REMINYL [Suspect]
     Indication: DEMENTIA
     Route: 048
     Dates: start: 20130301, end: 20130328
  6. LANSOPRAZOLE [Concomitant]
     Route: 048
  7. MOSAPRIDE CITRATE [Concomitant]
     Route: 048
  8. YOKUKAN-SAN [Concomitant]
     Route: 048
  9. AIMIX [Concomitant]
     Route: 048
     Dates: end: 20130709

REACTIONS (3)
  - Bradycardia [Recovered/Resolved]
  - Electrocardiogram ST segment depression [Unknown]
  - Atrial fibrillation [Recovered/Resolved]
